FAERS Safety Report 6558167-5 (Version None)
Quarter: 2010Q1

REPORT INFORMATION
  Report Type: 
  Country: None (occurrence: None)
  Receive Date: 20100129
  Receipt Date: 20100125
  Transmission Date: 20100710
  Serious: Yes (Hospitalization, Other)
  Sender: FDA-Public Use
  Company Number: US-TEVA-222122USA

PATIENT
  Age: 59 Year
  Sex: Male

DRUGS (1)
  1. PROPRANOLOL HYDROCHLORIDE  TABLETS USP,20 MG [Suspect]

REACTIONS (1)
  - SCLEROSING ENCAPSULATING PERITONITIS [None]
